FAERS Safety Report 25335534 (Version 1)
Quarter: 2025Q2

REPORT INFORMATION
  Report Type: Spontaneous
  Country: CN (occurrence: CN)
  Receive Date: 20250520
  Receipt Date: 20250520
  Transmission Date: 20250716
  Serious: Yes (Hospitalization, Other)
  Sender: SANOFI AVENTIS
  Company Number: CN-SA-2025SA139960

PATIENT
  Age: 38 Year
  Sex: Female
  Weight: 56 kg

DRUGS (1)
  1. OXALIPLATIN [Suspect]
     Active Substance: OXALIPLATIN
     Indication: Gastric cancer
     Dosage: 135 MG, QD
     Route: 041
     Dates: start: 20250501, end: 20250501

REACTIONS (7)
  - Drug-induced liver injury [Recovering/Resolving]
  - Asthenia [Recovered/Resolved]
  - Decreased appetite [Recovering/Resolving]
  - Vomiting [Recovering/Resolving]
  - Granulocyte count decreased [Recovering/Resolving]
  - Pyrexia [Recovering/Resolving]
  - Nausea [Unknown]

NARRATIVE: CASE EVENT DATE: 20250501
